FAERS Safety Report 8732280 (Version 2)
Quarter: 2012Q4

REPORT INFORMATION
  Report Type: 
  Country: US (occurrence: US)
  Receive Date: 20120820
  Receipt Date: 20120921
  Transmission Date: 20130627
  Serious: No
  Sender: FDA-Public Use
  Company Number: US-PFIZER INC-2012199574

PATIENT
  Age: 3 Year
  Sex: Female
  Weight: 9.98 kg

DRUGS (3)
  1. GENOTROPIN [Suspect]
     Indication: GROWTH RETARDATION
     Dosage: 0.4 mg, daily
     Dates: start: 20120730
  2. ALCOHOL [Suspect]
     Indication: THERAPEUTIC PROCEDURE
     Dosage: UNK
  3. ALLEGRA [Concomitant]
     Indication: BRONCHIOLITIS
     Dosage: UNK, daily

REACTIONS (1)
  - Injection site rash [Not Recovered/Not Resolved]
